FAERS Safety Report 8259097-3 (Version None)
Quarter: 2012Q2

REPORT INFORMATION
  Report Type: 
  Country: None (occurrence: None)
  Receive Date: 20120403
  Receipt Date: 20120403
  Transmission Date: 20120825
  Serious: Yes (Hospitalization)
  Sender: FDA-Public Use
  Company Number: None

PATIENT
  Sex: Female
  Weight: 81.2 kg

DRUGS (2)
  1. CARBOPLATIN [Suspect]
     Dosage: 732 MG
  2. TAXOL [Suspect]
     Dosage: 370 MG

REACTIONS (6)
  - NAUSEA [None]
  - VOMITING [None]
  - HYPOTENSION [None]
  - FEBRILE NEUTROPENIA [None]
  - ASTHENIA [None]
  - DIARRHOEA [None]
